FAERS Safety Report 10039866 (Version 1)
Quarter: 2014Q1

REPORT INFORMATION
  Report Type: Spontaneous
  Country: GB (occurrence: GB)
  Receive Date: 20140326
  Receipt Date: 20140326
  Transmission Date: 20141002
  Serious: Yes (Hospitalization)
  Sender: FDA-Public Use
  Company Number: GB-JNJFOC-20140312011

PATIENT
  Age: 74 Year
  Sex: Male

DRUGS (18)
  1. XARELTO [Suspect]
     Indication: ATRIAL FIBRILLATION
     Route: 048
     Dates: start: 20131217, end: 20140226
  2. XARELTO [Suspect]
     Indication: CEREBROVASCULAR ACCIDENT PROPHYLAXIS
     Route: 048
     Dates: start: 20131217, end: 20140226
  3. ASPIRIN [Suspect]
     Indication: PRODUCT USED FOR UNKNOWN INDICATION
     Route: 048
  4. FOLIC ACID [Concomitant]
     Route: 048
  5. IBUPROFEN [Concomitant]
     Route: 061
  6. PARACETAMOL [Concomitant]
     Route: 065
  7. TRAMADOL [Concomitant]
     Route: 048
  8. AMITRIPTYLINE [Concomitant]
     Route: 048
  9. ATORVASTATIN [Concomitant]
     Route: 048
  10. BISOPROLOL [Concomitant]
     Route: 048
  11. FUROSEMIDE [Concomitant]
     Route: 048
  12. INDACATEROL [Concomitant]
     Route: 045
  13. LAXIDO [Concomitant]
     Route: 048
  14. RAMIPRIL [Concomitant]
     Route: 048
  15. RANITIDINE [Concomitant]
     Route: 048
  16. SALBUTAMOL [Concomitant]
     Route: 045
  17. GLYCOPYRRONIUM BROMIDE [Concomitant]
     Route: 045
  18. TAMSULOSIN [Concomitant]
     Route: 048

REACTIONS (3)
  - Gastrointestinal angiodysplasia haemorrhagic [Recovered/Resolved]
  - Melaena [Unknown]
  - Incorrect dose administered [Unknown]
